FAERS Safety Report 4787835-0 (Version None)
Quarter: 2005Q4

REPORT INFORMATION
  Report Type: 
  Country: None (occurrence: None)
  Receive Date: 20051004
  Receipt Date: 20050927
  Transmission Date: 20060501
  Serious: Yes (Hospitalization)
  Sender: FDA-Public Use
  Company Number: US-MERCK-0509USA04711

PATIENT
  Age: 76 Year
  Sex: Male
  Weight: 88 kg

DRUGS (2)
  1. VIOXX [Suspect]
     Indication: ARTHRITIS
     Route: 048
     Dates: start: 20000808, end: 20030909
  2. PRILOSEC [Concomitant]
     Route: 065

REACTIONS (4)
  - GASTROOESOPHAGEAL REFLUX DISEASE [None]
  - MYOCARDIAL INFARCTION [None]
  - NECK PAIN [None]
  - SHOULDER PAIN [None]
